FAERS Safety Report 4947990-6 (Version None)
Quarter: 2006Q1

REPORT INFORMATION
  Report Type: 
  Country: None (occurrence: None)
  Receive Date: 20060320
  Receipt Date: 20051019
  Transmission Date: 20060701
  Serious: Yes (Hospitalization)
  Sender: FDA-Public Use
  Company Number: US-MERCK-0510USA08287

PATIENT
  Age: 54 Year
  Sex: Male

DRUGS (15)
  1. VIOXX [Suspect]
     Route: 048
     Dates: start: 20010101, end: 20040701
  2. BETASERON [Concomitant]
     Route: 065
  3. VIAGRA [Concomitant]
     Route: 065
  4. TYLENOL W/ CODEINE NO. 3 [Concomitant]
     Route: 065
  5. [THERAPY UNSPECIFIED] [Concomitant]
     Route: 065
  6. NEXIUM [Concomitant]
     Route: 065
  7. PREDNISONE [Concomitant]
     Route: 065
  8. VITAMINS (UNSPECIFIED) [Concomitant]
     Route: 065
  9. ZOCOR [Concomitant]
     Route: 065
  10. ATENOLOL [Concomitant]
     Route: 065
  11. NOW CORAL CALCIUM PLUS [Concomitant]
     Route: 065
  12. LYSINE [Concomitant]
     Route: 065
  13. POTASSIUM (UNSPECIFIED) [Concomitant]
     Route: 065
  14. VITAMIN E [Concomitant]
     Route: 065
  15. ASCORBIC ACID [Concomitant]
     Route: 065

REACTIONS (2)
  - ATRIAL FIBRILLATION [None]
  - MYOCARDIAL INFARCTION [None]
